FAERS Safety Report 7064929-0 (Version None)
Quarter: 2010Q4

REPORT INFORMATION
  Report Type: 
  Country: None (occurrence: None)
  Receive Date: 20101027
  Receipt Date: 20101015
  Transmission Date: 20110411
  Serious: Yes (Other)
  Sender: FDA-Public Use
  Company Number: US-PFIZER INC-2010131528

PATIENT
  Sex: Female

DRUGS (1)
  1. TOVIAZ [Suspect]
     Dosage: UNK
     Route: 048
     Dates: start: 20101014

REACTIONS (4)
  - BLADDER PAIN [None]
  - DRUG INTOLERANCE [None]
  - INSOMNIA [None]
  - URINARY RETENTION [None]
